FAERS Safety Report 8370169-5 (Version None)
Quarter: 2012Q2

REPORT INFORMATION
  Report Type: 
  Country: None (occurrence: None)
  Receive Date: 20120518
  Receipt Date: 20120507
  Transmission Date: 20120825
  Serious: Yes (Life-Threatening, Hospitalization)
  Sender: FDA-Public Use
  Company Number: PK-PERRIGO-12PK003961

PATIENT
  Age: 40 Year
  Sex: Female

DRUGS (1)
  1. ACETAMINOPHEN [Suspect]
     Indication: PYREXIA
     Dosage: TWO TABLETS, SEVERAL DOSES
     Route: 048

REACTIONS (23)
  - PAIN [None]
  - MOUTH ULCERATION [None]
  - PRURITUS [None]
  - MYALGIA [None]
  - HYPOKALAEMIA [None]
  - EYE IRRITATION [None]
  - DYSKINESIA [None]
  - BLOOD BICARBONATE DECREASED [None]
  - CONJUNCTIVITIS [None]
  - SKIN EXFOLIATION [None]
  - STEVENS-JOHNSON SYNDROME [None]
  - MUCOSAL ULCERATION [None]
  - DYSPHAGIA [None]
  - DRY EYE [None]
  - SALIVARY HYPERSECRETION [None]
  - SKIN PLAQUE [None]
  - BURNING SENSATION [None]
  - LIP SWELLING [None]
  - EYE PAIN [None]
  - TOXIC EPIDERMAL NECROLYSIS [None]
  - RASH MACULO-PAPULAR [None]
  - SCAB [None]
  - SKIN LESION [None]
